FAERS Safety Report 12391482 (Version 2)
Quarter: 2016Q2

REPORT INFORMATION
  Report Type: Spontaneous
  Country: GB (occurrence: GB)
  Receive Date: 20160521
  Receipt Date: 20160528
  Transmission Date: 20160815
  Serious: Yes (Hospitalization)
  Sender: FDA-Public Use
  Company Number: GB-AMGEN-GBRSP2016063291

PATIENT
  Age: 66 Year
  Sex: Male

DRUGS (1)
  1. ARANESP [Suspect]
     Active Substance: DARBEPOETIN ALFA
     Indication: PRODUCT USED FOR UNKNOWN INDICATION
     Dosage: 80 MCG (0.4 ML)
     Route: 065

REACTIONS (3)
  - Angiopathy [Recovered/Resolved]
  - Pain in extremity [Recovered/Resolved]
  - Dialysis related complication [Recovered/Resolved]

NARRATIVE: CASE EVENT DATE: 20160328
